FAERS Safety Report 20985358 (Version 1)
Quarter: 2022Q2

REPORT INFORMATION
  Report Type: Spontaneous
  Country: US (occurrence: US)
  Receive Date: 20220621
  Receipt Date: 20220621
  Transmission Date: 20220721
  Serious: No
  Sender: FDA-Public Use
  Company Number: US-CHIESI-2022CHF01053

PATIENT
  Age: 46 Year
  Sex: Female
  Weight: 42 kg

DRUGS (10)
  1. FERRIPROX [Suspect]
     Active Substance: DEFERIPRONE
     Indication: Metallosis of globe
     Dosage: 1000 MILLIGRAM, BID
     Route: 048
     Dates: start: 20210302
  2. FERRIPROX [Suspect]
     Active Substance: DEFERIPRONE
     Indication: Off label use
     Dosage: UNK
     Route: 048
     Dates: start: 20141024
  3. FERRIPROX [Suspect]
     Active Substance: DEFERIPRONE
     Dosage: UNK
     Route: 048
     Dates: start: 20191017
  4. LINZESS [Concomitant]
     Active Substance: LINACLOTIDE
     Indication: Product used for unknown indication
     Dosage: UNK, PRN
  5. VITAMIN D NOS [Concomitant]
     Active Substance: VITAMIN D NOS
     Indication: Product used for unknown indication
     Dosage: UNK
  6. CALCIUM [Concomitant]
     Active Substance: CALCIUM
     Indication: Product used for unknown indication
     Dosage: UNK
  7. NEUTRA-PHOS-K [PHOSPHORUS;POTASSIUM] [Concomitant]
     Indication: Product used for unknown indication
     Dosage: UNK
  8. LEVOTHYROXINE [Concomitant]
     Active Substance: LEVOTHYROXINE
     Indication: Product used for unknown indication
     Dosage: UNK
  9. VITAMINS [Concomitant]
     Active Substance: VITAMINS
     Indication: Product used for unknown indication
     Dosage: UNK
  10. CLARITIN [Concomitant]
     Active Substance: LORATADINE
     Indication: Product used for unknown indication
     Dosage: UNK

REACTIONS (3)
  - Anaemia [Recovering/Resolving]
  - Off label use [Unknown]
  - Off label use [Unknown]

NARRATIVE: CASE EVENT DATE: 20141024
